FAERS Safety Report 9380764 (Version 1)
Quarter: 2013Q3

REPORT INFORMATION
  Report Type: Spontaneous
  Country: US (occurrence: US)
  Receive Date: 20130702
  Receipt Date: 20130702
  Transmission Date: 20140515
  Serious: No
  Sender: FDA-Public Use
  Company Number: US-009507513-1306USA009647

PATIENT
  Sex: Male

DRUGS (3)
  1. PEGINTRON [Suspect]
     Indication: HEPATITIS C
     Dosage: REDIPEN
     Dates: start: 20130429
  2. REBETOL [Suspect]
     Dosage: UNK
     Dates: start: 20130429
  3. TELAPREVIR [Suspect]
     Indication: HEPATITIS C
     Dosage: UNK

REACTIONS (1)
  - Injection site bruising [Unknown]
